FAERS Safety Report 9793159 (Version 1)
Quarter: 2013Q4

REPORT INFORMATION
  Report Type: Spontaneous
  Country: US (occurrence: None)
  Receive Date: 20131231
  Receipt Date: 20131231
  Transmission Date: 20140711
  Serious: Yes (Hospitalization)
  Sender: FDA-Public Use
  Company Number: None

PATIENT
  Age: 70 Year
  Sex: Male
  Weight: 62.6 kg

DRUGS (2)
  1. NAPROXEN [Suspect]
     Indication: PAIN
     Route: 048
     Dates: start: 20130117, end: 20131107
  2. AMLODIPINE [Suspect]
     Indication: HYPERTENSION
     Route: 048
     Dates: start: 20111021, end: 20131107

REACTIONS (5)
  - Hyperkalaemia [None]
  - Abdominal distension [None]
  - Urinary incontinence [None]
  - Faecal incontinence [None]
  - Renal failure acute [None]
